FAERS Safety Report 4396937-2 (Version None)
Quarter: 2004Q2

REPORT INFORMATION
  Report Type: 
  Country: None (occurrence: None)
  Receive Date: 20040621
  Receipt Date: 20031222
  Transmission Date: 20050107
  Serious: Yes (Hospitalization, Other)
  Sender: FDA-Public Use
  Company Number: USA-2003-0012241

PATIENT
  Age: 53 Year
  Sex: Male

DRUGS (10)
  1. OXYCONTIN [Suspect]
     Indication: PAIN
     Dosage: 20 MG, DAILY
  2. DARVOCET0N (PARACETAMOL) [Suspect]
     Indication: PAIN
  3. ENDOCET (OXYCODONE HYDROCHLORIDE, PARACETAMOL) [Suspect]
  4. PERCOCET [Suspect]
  5. ENDODAN (ACETYLSALICYLIC ACID, OXYCODONE HYDROCHLOR) [Suspect]
  6. DURAGESIC [Suspect]
  7. TYLENOL W/ CODEINE [Suspect]
  8. DARVON [Suspect]
  9. DIAZEPAM [Suspect]
  10. VICODIN [Suspect]

REACTIONS (3)
  - DRUG ABUSER [None]
  - DRUG DEPENDENCE [None]
  - PAIN [None]
